FAERS Safety Report 7488112-X (Version None)
Quarter: 2011Q2

REPORT INFORMATION
  Report Type: 
  Country: None (occurrence: None)
  Receive Date: 20110518
  Receipt Date: 20110504
  Transmission Date: 20111010
  Serious: Yes (Hospitalization)
  Sender: FDA-Public Use
  Company Number: ES-JNJFOC-20101002780

PATIENT
  Sex: Male
  Weight: 83 kg

DRUGS (3)
  1. OMEPRAZOLE [Concomitant]
     Route: 048
  2. REMICADE [Suspect]
     Indication: COLITIS ULCERATIVE
     Route: 042
  3. STEROIDS NOS [Concomitant]

REACTIONS (1)
  - RENAL COLIC [None]
